FAERS Safety Report 6401177-9 (Version None)
Quarter: 2009Q4

REPORT INFORMATION
  Report Type: 
  Country: None (occurrence: None)
  Receive Date: 20091015
  Receipt Date: 20091001
  Transmission Date: 20100525
  Serious: Yes (Other)
  Sender: FDA-Public Use
  Company Number: CA-ROCHE-597074

PATIENT
  Sex: Female
  Weight: 85.6 kg

DRUGS (10)
  1. PEG-INTERFERON ALFA 2A (RO 25-8310) [Suspect]
     Dosage: FORM: PRE-FILLED SYRINGE PER PROTOCOL, DOSAGE FORM: 0.5 ML,DATE OF LAST DOSE PRIOR TO SAE:07 NOV 08.
     Route: 058
     Dates: start: 20080201, end: 20081128
  2. RIBAVIRIN [Suspect]
     Route: 048
     Dates: start: 20080201
  3. RIBAVIRIN [Suspect]
     Route: 048
     Dates: start: 20080401
  4. RIBAVIRIN [Suspect]
     Route: 048
     Dates: start: 20080426
  5. RIBAVIRIN [Suspect]
     Route: 048
     Dates: start: 20080527
  6. RIBAVIRIN [Suspect]
     Dosage: PERMANENTLY STOPPED.
     Route: 048
     Dates: start: 20080721, end: 20081006
  7. DIOVAN HCT [Concomitant]
     Route: 048
     Dates: start: 20040501
  8. PREVACID [Concomitant]
     Route: 048
     Dates: start: 20040501
  9. EPO [Concomitant]
     Route: 058
     Dates: start: 20080223
  10. FERROUS GLUCONATE [Concomitant]
     Route: 048
     Dates: start: 20080401

REACTIONS (1)
  - PANCYTOPENIA [None]
